FAERS Safety Report 11153665 (Version 1)
Quarter: 2015Q2

REPORT INFORMATION
  Report Type: Spontaneous
  Country: US (occurrence: US)
  Receive Date: 20150602
  Receipt Date: 20150602
  Transmission Date: 20150821
  Serious: No
  Sender: FDA-Public Use
  Company Number: US-NOVEN PHARMACEUTICALS, INC.-14US009641

PATIENT
  Sex: Female

DRUGS (2)
  1. DAYTRANA [Suspect]
     Active Substance: METHYLPHENIDATE
     Dosage: 50 MG, (20MG + 30MG; QD)
     Route: 062
     Dates: start: 2010, end: 201208
  2. DAYTRANA [Suspect]
     Active Substance: METHYLPHENIDATE
     Indication: ATTENTION DEFICIT/HYPERACTIVITY DISORDER
     Dosage: 20 MG, QD
     Route: 062
     Dates: start: 201208

REACTIONS (13)
  - Weight increased [Not Recovered/Not Resolved]
  - Weight decreased [Recovered/Resolved]
  - Application site erythema [Not Recovered/Not Resolved]
  - Aggression [Not Recovered/Not Resolved]
  - Drug dose omission [None]
  - Drug prescribing error [Recovered/Resolved]
  - Skin striae [Not Recovered/Not Resolved]
  - Wrong technique in drug usage process [Recovered/Resolved]
  - Decreased appetite [Recovered/Resolved]
  - Mood swings [Not Recovered/Not Resolved]
  - Increased appetite [Not Recovered/Not Resolved]
  - Application site pruritus [Not Recovered/Not Resolved]
  - Overdose [Recovered/Resolved]

NARRATIVE: CASE EVENT DATE: 2010
